FAERS Safety Report 20375658 (Version 1)
Quarter: 2022Q1

REPORT INFORMATION
  Report Type: Report from Study
  Country: PK (occurrence: PK)
  Receive Date: 20220125
  Receipt Date: 20220125
  Transmission Date: 20220424
  Serious: Yes (Death)
  Sender: FDA-Public Use
  Company Number: PK-NOVARTISPH-NVSC2022PK015826

PATIENT
  Age: 49 Year
  Sex: Female
  Weight: 38 kg

DRUGS (1)
  1. GLIVEC [Suspect]
     Active Substance: IMATINIB MESYLATE
     Indication: Chronic myeloid leukaemia
     Dosage: 100 MG (4XOD)
     Route: 048
     Dates: start: 20200609

REACTIONS (1)
  - Death [Fatal]

NARRATIVE: CASE EVENT DATE: 20211031
